FAERS Safety Report 20350900 (Version 2)
Quarter: 2022Q1

REPORT INFORMATION
  Report Type: Report from Study
  Country: PE (occurrence: PE)
  Receive Date: 20220119
  Receipt Date: 20220301
  Transmission Date: 20220424
  Serious: Yes (Other)
  Sender: FDA-Public Use
  Company Number: PE-009507513-2104PER002423

PATIENT
  Age: 53 Year
  Sex: Male

DRUGS (6)
  1. JANUVIA [Suspect]
     Active Substance: SITAGLIPTIN PHOSPHATE
     Indication: Type 2 diabetes mellitus
  2. JANUMET [Suspect]
     Active Substance: METFORMIN HYDROCHLORIDE\SITAGLIPTIN PHOSPHATE
     Indication: Type 2 diabetes mellitus
     Dosage: 1 TABLET DAILY
     Route: 048
     Dates: start: 20200715, end: 202202
  3. LOSARTAN [Suspect]
     Active Substance: LOSARTAN
     Indication: Hypertension
     Dosage: 50 MILLIGRAM, QD
     Route: 048
     Dates: start: 202104, end: 20210419
  4. CYMBALTA [Concomitant]
     Active Substance: DULOXETINE HYDROCHLORIDE
     Indication: Diabetic neuropathy
     Dosage: UNK, QD
     Route: 048
     Dates: start: 2018
  5. .ALPHA.-LIPOIC ACID [Concomitant]
     Active Substance: .ALPHA.-LIPOIC ACID
     Indication: Prophylaxis
     Dosage: 600 MILLIGRAM, QD
     Dates: start: 2018
  6. CAPTOPRIL [Concomitant]
     Active Substance: CAPTOPRIL
     Indication: Hypertension

REACTIONS (62)
  - Cardiomyopathy [Unknown]
  - Blood glucose increased [Unknown]
  - Erectile dysfunction [Not Recovered/Not Resolved]
  - Hepatitis [Unknown]
  - Pancreatitis [Unknown]
  - Neuropathy peripheral [Unknown]
  - Suffocation feeling [Recovered/Resolved]
  - Prostatitis [Recovered/Resolved]
  - Grip strength decreased [Recovered/Resolved]
  - Dyspnoea [Not Recovered/Not Resolved]
  - Diaphragmalgia [Unknown]
  - Grief reaction [Not Recovered/Not Resolved]
  - Pulmonary pain [Unknown]
  - Tachycardia [Recovered/Resolved]
  - Renal pain [Recovered/Resolved]
  - Blood pressure fluctuation [Unknown]
  - Spinal pain [Unknown]
  - Tension [Unknown]
  - Chest pain [Recovered/Resolved]
  - Cough [Unknown]
  - Blood glucose increased [Recovered/Resolved]
  - Blood pressure decreased [Unknown]
  - Tremor [Recovered/Resolved]
  - Dry skin [Unknown]
  - Gastroenteritis viral [Recovered/Resolved]
  - Urinary tract infection [Recovered/Resolved with Sequelae]
  - Hepatic steatosis [Recovered/Resolved]
  - Swelling [Recovered/Resolved]
  - Muscle spasms [Not Recovered/Not Resolved]
  - Blood glucose increased [Recovered/Resolved]
  - Anxiety [Unknown]
  - Neck pain [Not Recovered/Not Resolved]
  - Somnolence [Recovered/Resolved]
  - Stress [Unknown]
  - Renal disorder [Unknown]
  - Hyperhidrosis [Recovered/Resolved]
  - Palpitations [Recovered/Resolved]
  - Fatigue [Not Recovered/Not Resolved]
  - Dizziness [Recovered/Resolved]
  - Pain in extremity [Recovered/Resolved]
  - Headache [Recovered/Resolved]
  - Constipation [Recovered/Resolved]
  - Hypersensitivity [Not Recovered/Not Resolved]
  - Constipation [Not Recovered/Not Resolved]
  - Large intestine infection [Recovered/Resolved]
  - Pain in extremity [Not Recovered/Not Resolved]
  - Cough [Not Recovered/Not Resolved]
  - Hypersensitivity [Not Recovered/Not Resolved]
  - Diabetic vascular disorder [Unknown]
  - Dyspepsia [Unknown]
  - Chest pain [Unknown]
  - Hypoaesthesia [Not Recovered/Not Resolved]
  - Economic problem [Unknown]
  - Blood creatinine increased [Unknown]
  - Blood alkaline phosphatase increased [Unknown]
  - Blood glucose increased [Unknown]
  - Glycosylated haemoglobin increased [Unknown]
  - Prescribed overdose [Unknown]
  - Intentional product use issue [Unknown]
  - Nephrolithiasis [Unknown]
  - Back pain [Unknown]
  - Intentional product use issue [Unknown]

NARRATIVE: CASE EVENT DATE: 20201101
